FAERS Safety Report 8494821 (Version 4)
Quarter: 2012Q4

REPORT INFORMATION
  Report Type: 
  Country: US (occurrence: US)
  Receive Date: 20120405
  Receipt Date: 20121116
  Transmission Date: 20130627
  Serious: Yes (Hospitalization, Other)
  Sender: FDA-Public Use
  Company Number: US-BIOGENIDEC-2012BI011037

PATIENT
  Age: 59 Year
  Sex: Female

DRUGS (5)
  1. TYSABRI [Suspect]
     Indication: MULTIPLE SCLEROSIS
     Route: 042
     Dates: start: 20090604, end: 20091022
  2. TYSABRI [Suspect]
     Indication: MULTIPLE SCLEROSIS
     Route: 042
     Dates: start: 20100730, end: 20100924
  3. TYSABRI [Suspect]
     Indication: MULTIPLE SCLEROSIS
     Route: 042
     Dates: start: 20110819
  4. LEVOTHYROXINE [Concomitant]
     Indication: HYPOTHYROIDISM
     Dates: start: 2011
  5. METOPROLOL [Concomitant]
     Indication: HYPERTENSION

REACTIONS (8)
  - Deep vein thrombosis [Recovered/Resolved]
  - Anaemia [Recovered/Resolved]
  - Renal failure [Not Recovered/Not Resolved]
  - Urinary tract infection [Recovered/Resolved]
  - Hypertension [Recovered/Resolved]
  - Hypergammaglobulinaemia benign monoclonal [Not Recovered/Not Resolved]
  - Musculoskeletal disorder [Not Recovered/Not Resolved]
  - Coordination abnormal [Not Recovered/Not Resolved]
